FAERS Safety Report 13984014 (Version 1)
Quarter: 2017Q3

REPORT INFORMATION
  Report Type: Spontaneous
  Country: US (occurrence: US)
  Receive Date: 20170918
  Receipt Date: 20170918
  Transmission Date: 20171128
  Serious: No
  Sender: FDA-Public Use
  Company Number: US-PFIZER INC-2017402569

PATIENT
  Age: 64 Year
  Sex: Female
  Weight: 45.35 kg

DRUGS (2)
  1. CHANTIX [Suspect]
     Active Substance: VARENICLINE TARTRATE
     Indication: SMOKING CESSATION THERAPY
     Dosage: UNK UNK, 1X/DAY
     Dates: start: 20170910, end: 201709
  2. CHANTIX [Suspect]
     Active Substance: VARENICLINE TARTRATE
     Dosage: UNK, 2X/DAY
     Dates: start: 201709

REACTIONS (5)
  - Malaise [Unknown]
  - Influenza like illness [Unknown]
  - Asthenia [Unknown]
  - Dysphonia [Unknown]
  - Feeling hot [Unknown]

NARRATIVE: CASE EVENT DATE: 201709
